FAERS Safety Report 6542980-4 (Version None)
Quarter: 2010Q1

REPORT INFORMATION
  Report Type: 
  Country: None (occurrence: None)
  Receive Date: 20100120
  Receipt Date: 20100111
  Transmission Date: 20100710
  Serious: Yes (Other)
  Sender: FDA-Public Use
  Company Number: BG-ROCHE-678936

PATIENT
  Sex: Female
  Weight: 60 kg

DRUGS (6)
  1. MIRCERA [Suspect]
     Route: 058
     Dates: start: 20090810, end: 20091001
  2. FURANTIL [Concomitant]
     Dosage: DOSE: 1 TABLET, FREQUENCY: EVERY 2-ND DAY
     Route: 048
  3. ALBUMIN (HUMAN) [Concomitant]
     Indication: HEPATITIS C
     Dosage: FREQUENCY: 4 X MONTHLY
     Dates: start: 20091207
  4. CEFTRIAXONE [Concomitant]
     Indication: THROMBOPHLEBITIS
     Dosage: FREQUENCY: 2 X DAILY
     Dates: start: 20091207
  5. CLEXANE [Concomitant]
     Indication: THROMBOPHLEBITIS
     Dosage: FREQUENCY: 1 X DAILY
     Route: 058
     Dates: start: 20091217
  6. ATENOLOL [Concomitant]
     Dosage: FREQUENCY: 1 X DAILY
     Route: 048

REACTIONS (4)
  - CARDIAC FAILURE [None]
  - PLATELET COUNT DECREASED [None]
  - SYNCOPE [None]
  - VENOUS THROMBOSIS [None]
